FAERS Safety Report 8943357 (Version 3)
Quarter: 2013Q2

REPORT INFORMATION
  Report Type: Spontaneous
  Country: US (occurrence: US)
  Receive Date: 20121204
  Receipt Date: 20130509
  Transmission Date: 20140414
  Serious: No
  Sender: FDA-Public Use
  Company Number: US-009507513-1212USA000947

PATIENT
  Sex: Male

DRUGS (5)
  1. PEGINTRON [Suspect]
     Indication: HEPATITIS C
     Dosage: UNK
     Dates: start: 20121114, end: 20130423
  2. REBETOL [Suspect]
     Indication: HEPATITIS C
     Dosage: 600 MG (AM) AND 400 MG (PM), BID
     Route: 048
     Dates: start: 20121114
  3. REBETOL [Suspect]
     Dosage: 400 MG IN THE AM AND PM
  4. REBETOL [Suspect]
     Dosage: 2 EVERY OTHER DAY AND 1 THE OTHER DAY
     Route: 048
     Dates: end: 20130423
  5. VICTRELIS [Suspect]
     Indication: HEPATITIS C
     Dosage: UNK
     Route: 048
     Dates: start: 20121212, end: 20130423

REACTIONS (13)
  - Anaemia [Unknown]
  - Dysgeusia [Unknown]
  - Haemoglobin decreased [Unknown]
  - Pyrexia [Unknown]
  - Fatigue [Unknown]
  - Nausea [Unknown]
  - Fatigue [Unknown]
  - Therapeutic response decreased [Unknown]
  - Haemoglobin decreased [Unknown]
  - White blood cell count decreased [Unknown]
  - Drug ineffective [Unknown]
  - Anaemia [Unknown]
  - Leukopenia [Unknown]
